FAERS Safety Report 23746214 (Version 2)
Quarter: 2024Q2

REPORT INFORMATION
  Report Type: Spontaneous
  Country: US (occurrence: US)
  Receive Date: 20240416
  Receipt Date: 20240524
  Transmission Date: 20240715
  Serious: No
  Sender: FDA-Public Use
  Company Number: US-862174955-ML2024-01931

PATIENT
  Age: 69 Year
  Sex: Female

DRUGS (1)
  1. DORZOLAMIDE [Suspect]
     Active Substance: DORZOLAMIDE
     Indication: Glaucoma
     Route: 047

REACTIONS (3)
  - Product dose omission issue [Unknown]
  - Product packaging quantity issue [Unknown]
  - Product quality issue [Unknown]

NARRATIVE: CASE EVENT DATE: 20240101
